FAERS Safety Report 9580976 (Version 1)
Quarter: 2013Q4

REPORT INFORMATION
  Report Type: Spontaneous
  Country: US (occurrence: None)
  Receive Date: 20131001
  Receipt Date: 20131001
  Transmission Date: 20140711
  Serious: Yes (Disabling)
  Sender: FDA-Public Use
  Company Number: None

PATIENT
  Age: 64 Year
  Sex: Female
  Weight: 58.97 kg

DRUGS (2)
  1. CRESTOR [Suspect]
     Indication: CARDIAC DISORDER
     Dosage: 1 PILL ONCE DAILY TAKEN BY MOUTH
  2. CRESTOR [Suspect]
     Indication: BLOOD CHOLESTEROL INCREASED
     Dosage: 1 PILL ONCE DAILY TAKEN BY MOUTH

REACTIONS (7)
  - Pain in extremity [None]
  - Muscular weakness [None]
  - Back pain [None]
  - Arthralgia [None]
  - No therapeutic response [None]
  - Sleep disorder [None]
  - Activities of daily living impaired [None]
